FAERS Safety Report 25438172 (Version 4)
Quarter: 2025Q3

REPORT INFORMATION
  Report Type: Spontaneous
  Country: US (occurrence: US)
  Receive Date: 20250616
  Receipt Date: 20250729
  Transmission Date: 20251020
  Serious: No
  Sender: BOEHRINGER INGELHEIM
  Company Number: US-Komodo Health-a23aa0000088EafAAE

PATIENT
  Sex: Female

DRUGS (3)
  1. SPIRIVA [Suspect]
     Active Substance: TIOTROPIUM BROMIDE MONOHYDRATE
     Indication: Chronic obstructive pulmonary disease
  2. SPIRIVA [Suspect]
     Active Substance: TIOTROPIUM BROMIDE MONOHYDRATE
  3. Duleri [Concomitant]
     Indication: Product used for unknown indication

REACTIONS (4)
  - Product delivery mechanism issue [Unknown]
  - Drug ineffective [Unknown]
  - Dyspnoea [Unknown]
  - Sensitivity to weather change [Unknown]
